FAERS Safety Report 23737746 (Version 1)
Quarter: 2024Q2

REPORT INFORMATION
  Report Type: Spontaneous
  Country: CN (occurrence: CN)
  Receive Date: 20240412
  Receipt Date: 20240412
  Transmission Date: 20240716
  Serious: Yes (Other)
  Sender: FDA-Public Use
  Company Number: CN-ALCON LABORATORIES-ALC2024CN001888

PATIENT
  Age: 31 Year
  Sex: Male
  Weight: 67 kg

DRUGS (1)
  1. FLUORESCEIN SODIUM [Suspect]
     Active Substance: FLUORESCEIN SODIUM
     Indication: Fundoscopy
     Dosage: 4.950 ML, QD
     Route: 042
     Dates: start: 20240326, end: 20240326

REACTIONS (2)
  - Rash [Recovering/Resolving]
  - Pruritus [Recovering/Resolving]

NARRATIVE: CASE EVENT DATE: 20240326
